FAERS Safety Report 5893534-4 (Version None)
Quarter: 2008Q3

REPORT INFORMATION
  Report Type: 
  Country: None (occurrence: None)
  Receive Date: 20080919
  Receipt Date: 20080908
  Transmission Date: 20090109
  Serious: Yes (Life-Threatening, Hospitalization)
  Sender: FDA-Public Use
  Company Number: 002148

PATIENT
  Age: 12 Year
  Sex: Female

DRUGS (5)
  1. BUSULFEX [Suspect]
     Indication: STEM CELL TRANSPLANT
     Dosage: 18 ML, INTRAVENOUS
     Route: 042
     Dates: start: 20080204, end: 20080205
  2. THIOTEPA [Suspect]
     Dosage: 210 MG, INTRAVENOUS
     Route: 042
     Dates: start: 20080204, end: 20080205
  3. MELPHALAN (MELPHALAN) [Suspect]
     Dosage: 74 MG,; INTRAVENOUS
     Route: 042
     Dates: start: 20080211, end: 20080212
  4. PHENYTOIN [Concomitant]
  5. LENOGRASTIM (LENOGRASTIM) [Concomitant]

REACTIONS (12)
  - BONE MARROW TRANSPLANT REJECTION [None]
  - DIARRHOEA [None]
  - DRY MOUTH [None]
  - EPISTAXIS [None]
  - HAEMATURIA [None]
  - MALAISE [None]
  - MUCOUS MEMBRANE DISORDER [None]
  - NAUSEA [None]
  - STAPHYLOCOCCAL SEPSIS [None]
  - STEM CELL TRANSPLANT [None]
  - STOMATITIS [None]
  - VOMITING [None]
